FAERS Safety Report 8381835-X (Version None)
Quarter: 2012Q2

REPORT INFORMATION
  Report Type: 
  Country: None (occurrence: None)
  Receive Date: 20120522
  Receipt Date: 20120522
  Transmission Date: 20120825
  Serious: Yes (Other)
  Sender: FDA-Public Use
  Company Number: None

PATIENT
  Age: 59 Year
  Sex: Male
  Weight: 92.0802 kg

DRUGS (2)
  1. LEVOFLOXACIN [Suspect]
  2. LEVOFLOXACIN [Suspect]
     Indication: BRONCHITIS
     Dosage: 500 MG ONCE A DAY PO
     Route: 048
     Dates: start: 20120423, end: 20120502

REACTIONS (7)
  - JOINT WARMTH [None]
  - ABASIA [None]
  - ARTHRALGIA [None]
  - OEDEMA PERIPHERAL [None]
  - GOUT [None]
  - JOINT SWELLING [None]
  - PRODUCT QUALITY ISSUE [None]
